FAERS Safety Report 13099592 (Version 2)
Quarter: 2017Q1

REPORT INFORMATION
  Report Type: Report from Study
  Country: CN (occurrence: CN)
  Receive Date: 20170109
  Receipt Date: 20170207
  Transmission Date: 20170428
  Serious: Yes (Death, Other)
  Sender: FDA-Public Use
  Company Number: CN-ROCHE-1701990

PATIENT
  Sex: Male
  Weight: 63 kg

DRUGS (2)
  1. AVASTIN [Suspect]
     Active Substance: BEVACIZUMAB
     Route: 041
  2. AVASTIN [Suspect]
     Active Substance: BEVACIZUMAB
     Indication: RECTAL CANCER
     Route: 041
     Dates: start: 20150903, end: 20161123

REACTIONS (5)
  - Blood creatinine increased [Unknown]
  - Renal impairment [Unknown]
  - Cardiopulmonary failure [Fatal]
  - Lung neoplasm [Unknown]
  - White blood cell count decreased [Unknown]
